FAERS Safety Report 14068675 (Version 1)
Quarter: 2017Q4

REPORT INFORMATION
  Report Type: Spontaneous
  Country: US (occurrence: US)
  Receive Date: 20171010
  Receipt Date: 20171010
  Transmission Date: 20180321
  Serious: No
  Sender: FDA-Public Use
  Company Number: US-PFIZER INC-2017434494

PATIENT
  Sex: Female

DRUGS (6)
  1. BENICAR [Suspect]
     Active Substance: OLMESARTAN MEDOXOMIL
     Dosage: 20 MG, UNK
  2. AVELOX [Suspect]
     Active Substance: MOXIFLOXACIN HYDROCHLORIDE
     Dosage: UNK
  3. FLAGYL [Suspect]
     Active Substance: METRONIDAZOLE\METRONIDAZOLE HYDROCHLORIDE
     Dosage: UNK
  4. CELEBREX [Suspect]
     Active Substance: CELECOXIB
     Indication: ARTHRITIS
     Dosage: 200 MG, 2X/DAY
  5. CODEINE [Suspect]
     Active Substance: CODEINE
     Dosage: UNK
  6. LYRICA [Suspect]
     Active Substance: PREGABALIN
     Dosage: 50 MG, UNK

REACTIONS (1)
  - Drug hypersensitivity [Unknown]
